FAERS Safety Report 9016707 (Version 1)
Quarter: 2013Q1

REPORT INFORMATION
  Report Type: Report from Study
  Country: KR (occurrence: KR)
  Receive Date: 20130116
  Receipt Date: 20130116
  Transmission Date: 20140127
  Serious: Yes (Death)
  Sender: FDA-Public Use
  Company Number: KR-SANOFI-AVENTIS-2013SA003390

PATIENT
  Sex: 0

DRUGS (6)
  1. CISPLATIN [Suspect]
     Indication: SQUAMOUS CELL CARCINOMA OF HEAD AND NECK
     Dosage: ON DAY 1 OF EACH CYCLE
     Route: 042
  2. DOCETAXEL [Suspect]
     Indication: SQUAMOUS CELL CARCINOMA OF HEAD AND NECK
     Dosage: ON DAY 1 OF EACH CYCLE
     Route: 065
  3. DEXAMETHASONE [Concomitant]
     Dosage: 12 H BEFORE DOCETAXEL
     Route: 048
  4. DEXAMETHASONE [Concomitant]
     Dosage: FOLLOWING DOCETAXEL INFUSION FOR THREE DAYS
     Route: 048
  5. NORMAL SALINE [Concomitant]
     Dosage: 2 H IMMEDIATELY PRIOR TO CISPLATIN ADMINISTRATION
  6. SEROTONIN ANTAGONISTS [Concomitant]
     Dosage: ADMINISTERED 30 MIN BEFORE CHEMOTHERAPY AND ON DAYS 2, 3, AND 4

REACTIONS (1)
  - Cardiac arrest [Fatal]
